FAERS Safety Report 22694473 (Version 3)
Quarter: 2025Q3

REPORT INFORMATION
  Report Type: Spontaneous
  Country: EU (occurrence: EU)
  Receive Date: 20230712
  Receipt Date: 20250818
  Transmission Date: 20251020
  Serious: Yes (Other)
  Sender: CELLTRION
  Company Number: EU-CELLTRION INC.-2023IT013344

PATIENT

DRUGS (16)
  1. RITUXIMAB [Suspect]
     Active Substance: RITUXIMAB
     Indication: Waldenstrom^s macroglobulinaemia
     Dates: start: 2017
  2. RITUXIMAB [Suspect]
     Active Substance: RITUXIMAB
     Indication: Waldenstrom^s macroglobulinaemia
     Route: 065
     Dates: start: 2001
  3. RITUXIMAB [Suspect]
     Active Substance: RITUXIMAB
     Dates: start: 2006
  4. RITUXIMAB [Suspect]
     Active Substance: RITUXIMAB
     Dates: start: 2011
  5. BENDAMUSTINE [Suspect]
     Active Substance: BENDAMUSTINE
     Indication: Waldenstrom^s macroglobulinaemia
     Route: 065
     Dates: start: 2017
  6. CYCLOPHOSPHAMIDE [Suspect]
     Active Substance: CYCLOPHOSPHAMIDE
     Indication: Waldenstrom^s macroglobulinaemia
     Route: 065
     Dates: start: 2011
  7. FLUDARABINE [Suspect]
     Active Substance: FLUDARABINE PHOSPHATE
     Indication: Waldenstrom^s macroglobulinaemia
     Route: 065
     Dates: start: 2011
  8. CHLORAMBUCIL [Suspect]
     Active Substance: CHLORAMBUCIL
     Indication: Waldenstrom^s macroglobulinaemia
     Route: 065
     Dates: start: 2006
  9. VORICONAZOLE [Concomitant]
     Active Substance: VORICONAZOLE
     Indication: Antifungal treatment
  10. BORTEZOMIB [Concomitant]
     Active Substance: BORTEZOMIB
     Dates: start: 202110, end: 202202
  11. IBRUTINIB [Concomitant]
     Active Substance: IBRUTINIB
     Indication: Blood immunoglobulin M increased
     Dates: start: 2019
  12. IBRUTINIB [Concomitant]
     Active Substance: IBRUTINIB
     Indication: Anaemia
  13. IBRUTINIB [Concomitant]
     Active Substance: IBRUTINIB
     Indication: Lymphadenopathy
  14. ISAVUCONAZOLE [Concomitant]
     Active Substance: ISAVUCONAZOLE
     Dates: start: 202101
  15. POSACONAZOLE [Concomitant]
     Active Substance: POSACONAZOLE
  16. ENTECAVIR [Concomitant]
     Active Substance: ENTECAVIR
     Indication: Hepatitis B

REACTIONS (5)
  - Waldenstrom^s macroglobulinaemia [Unknown]
  - Bronchopulmonary aspergillosis [Recovering/Resolving]
  - Chronic hepatitis B [Unknown]
  - COVID-19 pneumonia [Unknown]
  - Intentional product use issue [Unknown]

NARRATIVE: CASE EVENT DATE: 20201201
